FAERS Safety Report 9669523 (Version 1)
Quarter: 2013Q4

REPORT INFORMATION
  Report Type: Spontaneous
  Country: DE (occurrence: DE)
  Receive Date: 20131105
  Receipt Date: 20131105
  Transmission Date: 20140711
  Serious: Yes (Death)
  Sender: FDA-Public Use
  Company Number: DE-PFIZER INC-2013313405

PATIENT
  Age: 60 Year
  Sex: Male
  Weight: 115 kg

DRUGS (6)
  1. SUTENT [Suspect]
     Indication: METASTATIC RENAL CELL CARCINOMA
     Dosage: UNK
     Route: 048
     Dates: start: 201203, end: 201310
  2. EUTHYROX [Concomitant]
     Indication: HYPOTHYROIDISM
  3. METO-TABLINEN [Concomitant]
     Indication: HYPERTENSION
  4. LUDIOMIL TABLET [Concomitant]
     Indication: DEPRESSION
  5. ENALAPRIL [Concomitant]
     Indication: HYPERTENSION
  6. OMEPRAZOL [Concomitant]
     Indication: GASTROOESOPHAGEAL REFLUX DISEASE

REACTIONS (1)
  - Aortic aneurysm rupture [Fatal]
